FAERS Safety Report 24545641 (Version 5)
Quarter: 2025Q4

REPORT INFORMATION
  Report Type: Report from Study
  Country: US (occurrence: US)
  Receive Date: 20241024
  Receipt Date: 20251218
  Transmission Date: 20260119
  Serious: Yes (Other)
  Sender: PFIZER
  Company Number: US-PFIZER INC-PV202400134460

PATIENT
  Age: 81 Year
  Sex: Female

DRUGS (4)
  1. IBRANCE [Suspect]
     Active Substance: PALBOCICLIB
     Dosage: 100 MG, DAILY ON DAY 1-21 ON 28 DAYS CYCLE
  2. IBRANCE [Suspect]
     Active Substance: PALBOCICLIB
     Dosage: 75 MG, DAILY ON DAYS 1 THROUGH 21 OF A 28 DAYS CYCLE
  3. IBRANCE [Suspect]
     Active Substance: PALBOCICLIB
     Dosage: 75 MG, TAKE ONE TABLET BY MOUTH EVERY OTHER DAY
     Route: 048
  4. IBRANCE [Suspect]
     Active Substance: PALBOCICLIB
     Dosage: 75 MG (1 TABLET AS DIRECTED, EVERY 3RD DAY)
     Route: 048

REACTIONS (3)
  - Cytopenia [Unknown]
  - White blood cell count decreased [Unknown]
  - Off label use [Unknown]
